FAERS Safety Report 8462259-3 (Version None)
Quarter: 2012Q2

REPORT INFORMATION
  Report Type: 
  Country: None (occurrence: None)
  Receive Date: 20120625
  Receipt Date: 20120619
  Transmission Date: 20120825
  Serious: Yes (Other)
  Sender: FDA-Public Use
  Company Number: US-SANOFI-AVENTIS-2012SA044495

PATIENT

DRUGS (4)
  1. FLUOROURACIL [Suspect]
     Indication: COLORECTAL CANCER
     Dosage: IMMEDIATELY AFTER CALCIUM FOLINATE ON DAYS 1 AND 2 OF EVERY 14-DAY CYCLE.
     Route: 040
  2. OXALIPLATIN [Suspect]
     Indication: COLORECTAL CANCER
     Dosage: OVER 2 HOURS ON DAY 1 OF EVERY 14 DAY CYCLE
     Route: 042
  3. FLUOROURACIL [Suspect]
     Dosage: AFTER IV BOLUS, AS CONTINUOUS IV INFUSION OVER 22 HOURS ON DAYS 1 AND 2 OF EVERY 14-DAY CYCLE
     Route: 042
  4. LEUCOVORIN CALCIUM [Suspect]
     Indication: COLORECTAL CANCER
     Dosage: OVER 2 HOURS ON DAYS 1 AND 2 OF EVERY 14-DAY CYCLE.
     Route: 042

REACTIONS (1)
  - CEREBRAL INFARCTION [None]
